FAERS Safety Report 5533426-3 (Version None)
Quarter: 2007Q4

REPORT INFORMATION
  Report Type: 
  Country: None (occurrence: None)
  Receive Date: 20071204
  Receipt Date: 20071128
  Transmission Date: 20080405
  Serious: Yes (Death)
  Sender: FDA-Public Use
  Company Number: PHHO2007VE10394

PATIENT
  Age: 80 Year
  Sex: Male

DRUGS (5)
  1. EXELON [Suspect]
     Dosage: UNK, QD
     Route: 048
  2. DILANTIN [Concomitant]
  3. HYZAAR [Concomitant]
  4. ZOCOR [Concomitant]
  5. TEGRETOL [Concomitant]

REACTIONS (1)
  - CEREBROVASCULAR ACCIDENT [None]
